FAERS Safety Report 6841457-6 (Version None)
Quarter: 2010Q3

REPORT INFORMATION
  Report Type: 
  Country: None (occurrence: None)
  Receive Date: 20100714
  Receipt Date: 20070706
  Transmission Date: 20110219
  Serious: No
  Sender: FDA-Public Use
  Company Number: US-PFIZER INC-2007056656

PATIENT
  Age: 60 Year
  Sex: Female

DRUGS (7)
  1. CHANTIX [Suspect]
     Indication: SMOKING CESSATION THERAPY
     Dates: start: 20070622
  2. PREVACID [Concomitant]
  3. FIORICET [Concomitant]
  4. CARAFATE [Concomitant]
  5. ZOLOFT [Concomitant]
  6. PRENATAL VITAMINS [Concomitant]
  7. TOPROL-XL [Concomitant]

REACTIONS (5)
  - BONE PAIN [None]
  - FEELING ABNORMAL [None]
  - INFLUENZA LIKE ILLNESS [None]
  - MUSCLE SPASMS [None]
  - MYALGIA [None]
